FAERS Safety Report 12341680 (Version 1)
Quarter: 2016Q2

REPORT INFORMATION
  Report Type: Spontaneous
  Country: US (occurrence: None)
  Receive Date: 20160505
  Receipt Date: 20160505
  Transmission Date: 20160815
  Serious: No
  Sender: FDA-Public Use
  Company Number: None

PATIENT
  Age: 59 Year
  Sex: Female

DRUGS (3)
  1. HUMIRA [Suspect]
     Active Substance: ADALIMUMAB
     Indication: VASCULITIS
     Dosage: 40MG/.8ML EVERY OTHER WEEK SUBCUTANEOUSLY?
     Route: 058
     Dates: start: 20080805
  2. HUMIRA [Suspect]
     Active Substance: ADALIMUMAB
     Indication: RHEUMATOID ARTHRITIS
     Dosage: 40MG/.8ML EVERY OTHER WEEK SUBCUTANEOUSLY?
     Route: 058
     Dates: start: 20080805
  3. HUMIRA [Suspect]
     Active Substance: ADALIMUMAB
     Indication: MULTIPLE SCLEROSIS
     Dosage: 40MG/.8ML EVERY OTHER WEEK SUBCUTANEOUSLY?
     Route: 058
     Dates: start: 20080805

REACTIONS (1)
  - Lymphadenopathy [None]

NARRATIVE: CASE EVENT DATE: 20160404
